FAERS Safety Report 7789541-7 (Version None)
Quarter: 2011Q3

REPORT INFORMATION
  Report Type: 
  Country: None (occurrence: None)
  Receive Date: 20110930
  Receipt Date: 20110920
  Transmission Date: 20111222
  Serious: Yes (Death, Life-Threatening, Hospitalization)
  Sender: FDA-Public Use
  Company Number: US-JNJFOC-20110611913

PATIENT
  Sex: Female
  Weight: 76.2 kg

DRUGS (38)
  1. AMBIEN [Concomitant]
     Route: 048
     Dates: start: 20091020
  2. VALTREX [Concomitant]
     Route: 048
     Dates: start: 20091019
  3. LOMOTIL [Concomitant]
     Indication: DIARRHOEA
     Route: 048
     Dates: start: 20100222
  4. STROVITE [Concomitant]
     Route: 048
     Dates: start: 20060707
  5. METHADONE HCL [Concomitant]
     Dates: start: 20110805
  6. ADVAIR DISKUS 100/50 [Concomitant]
     Route: 055
     Dates: start: 20070820
  7. LAMIVUDINE [Concomitant]
     Indication: HIV INFECTION
     Route: 048
     Dates: start: 20110816
  8. PROVENTIL [Concomitant]
     Indication: DYSPNOEA
     Route: 055
     Dates: start: 20040224
  9. ALLEGRA [Concomitant]
     Route: 048
     Dates: start: 20110722
  10. LOTRISONE [Concomitant]
     Dates: start: 20110722
  11. ABACAVIR [Suspect]
     Indication: HIV INFECTION
     Dates: start: 20110816
  12. RITONAVIR [Concomitant]
     Indication: HIV INFECTION
     Route: 048
     Dates: start: 20110816
  13. RITONAVIR [Concomitant]
     Route: 048
     Dates: start: 20110329, end: 20110531
  14. RALTEGRAVIR [Concomitant]
     Indication: HIV INFECTION
     Route: 048
     Dates: start: 20110329, end: 20110531
  15. STROVITE FORTE [Concomitant]
     Route: 048
     Dates: start: 20030821
  16. METHADONE HCL [Concomitant]
     Dates: start: 20090818
  17. POTASSIUM CHLORIDE [Concomitant]
     Route: 048
     Dates: start: 20091123
  18. SEROQUEL [Concomitant]
     Dates: start: 20110311
  19. NORVASC [Concomitant]
     Route: 048
     Dates: start: 20100921
  20. PROMETHAZINE W/ CODEINE [Concomitant]
     Indication: UPPER RESPIRATORY TRACT INFECTION
  21. TRUVADA [Concomitant]
     Route: 048
     Dates: start: 20090922
  22. IBUPROFEN [Concomitant]
     Route: 048
     Dates: start: 20070611
  23. BACTRIM [Concomitant]
     Route: 048
     Dates: start: 20090918
  24. LIPITOR [Concomitant]
     Route: 048
     Dates: start: 20110826
  25. ZITHROMAX [Concomitant]
     Dates: start: 20101123
  26. TRUVADA [Concomitant]
     Indication: HIV INFECTION
     Route: 048
     Dates: start: 20110329, end: 20110531
  27. DIOVAN HCT [Concomitant]
     Route: 048
     Dates: start: 20110805
  28. LAC-HYDRIN [Concomitant]
     Indication: DRY SKIN
     Route: 061
     Dates: start: 20110617
  29. WESTCORT [Concomitant]
     Route: 061
     Dates: start: 20110617
  30. DARUNAVIR ETHANOLATE [Suspect]
     Indication: HIV INFECTION
     Route: 048
     Dates: start: 20110329, end: 20110531
  31. RALTEGRAVIR [Concomitant]
     Route: 048
     Dates: start: 20110816
  32. ADVAIR DISKUS 100/50 [Concomitant]
     Route: 055
     Dates: start: 20091002
  33. DARUNAVIR ETHANOLATE [Suspect]
     Route: 048
     Dates: start: 20110816
  34. PERCOCET [Concomitant]
     Dates: start: 20101110
  35. ETRAVIRINE [Suspect]
     Indication: HIV INFECTION
     Route: 048
     Dates: start: 20110329, end: 20110531
  36. DIOVAN HCT [Concomitant]
     Route: 048
     Dates: start: 20090922
  37. PROMETHAZINE W/ CODEINE [Concomitant]
     Indication: COUGH
  38. METFORMIN HCL [Concomitant]
     Route: 048
     Dates: start: 20110502

REACTIONS (5)
  - SEPTIC SHOCK [None]
  - HEPATIC FAILURE [None]
  - RASH [None]
  - RENAL FAILURE ACUTE [None]
  - UROSEPSIS [None]
